FAERS Safety Report 7910688-6 (Version None)
Quarter: 2011Q4

REPORT INFORMATION
  Report Type: 
  Country: None (occurrence: None)
  Receive Date: 20111111
  Receipt Date: 20111107
  Transmission Date: 20120403
  Serious: Yes (Death)
  Sender: FDA-Public Use
  Company Number: CA-ASTRAZENECA-2011SE67269

PATIENT
  Age: 36 Year
  Sex: Male

DRUGS (6)
  1. DIAZEPAM [Suspect]
     Route: 065
  2. MARIJUANA [Suspect]
     Route: 065
  3. OXYCODONE HCL [Suspect]
     Route: 065
  4. SEROQUEL [Suspect]
     Route: 048
  5. ELAVIL [Suspect]
     Route: 065
  6. COCAINE [Suspect]
     Route: 065

REACTIONS (5)
  - DRUG ABUSE [None]
  - CARDIAC ARREST [None]
  - DYSARTHRIA [None]
  - OVERDOSE [None]
  - SOMNOLENCE [None]
